FAERS Safety Report 9107413 (Version 1)
Quarter: 2013Q1

REPORT INFORMATION
  Report Type: Spontaneous
  Country: FR (occurrence: FR)
  Receive Date: 20130221
  Receipt Date: 20130221
  Transmission Date: 20140127
  Serious: Yes (Other)
  Sender: FDA-Public Use
  Company Number: FR-ELI_LILLY_AND_COMPANY-FR201210008892

PATIENT
  Sex: Male
  Weight: 80 kg

DRUGS (12)
  1. ALIMTA [Suspect]
     Indication: LUNG ADENOCARCINOMA
     Dosage: 900 MG, UNK
     Route: 042
     Dates: start: 20120627
  2. ALIMTA [Suspect]
     Dosage: 775 MG, UNK
     Dates: start: 20121031
  3. DEXAMETHASONE [Concomitant]
     Indication: PREMEDICATION
  4. ACIDE FOLIQUE [Concomitant]
     Indication: PREMEDICATION
  5. VITAMIN B12 [Concomitant]
     Indication: PREMEDICATION
  6. ATACAND [Concomitant]
     Indication: HYPERTENSION
     Dosage: 4 MG, QD
  7. KARDEGIC [Concomitant]
     Indication: ANGIOPATHY
     Dosage: 75 MG, QD
  8. FORLAX [Concomitant]
     Indication: CONSTIPATION
  9. FRACTAL [Concomitant]
  10. XANAX [Concomitant]
     Dosage: 0.5 MG, PRN
  11. CARBOPLATINE [Concomitant]
     Indication: LUNG ADENOCARCINOMA
     Dosage: UNK
     Dates: start: 201203, end: 201206
  12. AVASTIN [Concomitant]
     Indication: LUNG ADENOCARCINOMA
     Dosage: UNK
     Dates: start: 201203, end: 201206

REACTIONS (6)
  - Keratitis [Recovering/Resolving]
  - Weight increased [Recovering/Resolving]
  - Face oedema [Recovering/Resolving]
  - Oedema peripheral [Recovering/Resolving]
  - Renal impairment [Unknown]
  - Off label use [Recovered/Resolved]
